FAERS Safety Report 21884561 (Version 1)
Quarter: 2023Q1

REPORT INFORMATION
  Report Type: Spontaneous
  Country: US (occurrence: None)
  Receive Date: 20230118
  Receipt Date: 20230118
  Transmission Date: 20230417
  Serious: Yes (Death, Hospitalization)
  Sender: FDA-Public Use
  Company Number: None

PATIENT
  Age: 57 Year
  Sex: Male
  Weight: 88.9 kg

DRUGS (3)
  1. YESCARTA [Suspect]
     Active Substance: AXICABTAGENE CILOLEUCEL
     Indication: Diffuse large B-cell lymphoma
     Dosage: OTHER QUANTITY : MAX (2X10^8);?OTHER FREQUENCY : OTHER;?
     Route: 042
     Dates: start: 20220728, end: 20220728
  2. YESCARTA [Suspect]
     Active Substance: AXICABTAGENE CILOLEUCEL
     Indication: Plasma cell myeloma refractory
  3. YESCARTA [Suspect]
     Active Substance: AXICABTAGENE CILOLEUCEL

REACTIONS (13)
  - Cytokine release syndrome [None]
  - Respiratory failure [None]
  - Neurotoxicity [None]
  - Pneumonia [None]
  - Cytomegalovirus viraemia [None]
  - Aspiration [None]
  - Arthritis bacterial [None]
  - Septic shock [None]
  - Procedural failure [None]
  - Cardiac failure [None]
  - Acute respiratory distress syndrome [None]
  - Ileus [None]
  - Toxicity to various agents [None]

NARRATIVE: CASE EVENT DATE: 20221229
